FAERS Safety Report 19004631 (Version 3)
Quarter: 2022Q1

REPORT INFORMATION
  Report Type: Report from Study
  Country: AT (occurrence: AT)
  Receive Date: 20210312
  Receipt Date: 20220308
  Transmission Date: 20220424
  Serious: Yes (Life-Threatening, Hospitalization, Other)
  Sender: FDA-Public Use
  Company Number: AT-BRISTOL-MYERS SQUIBB COMPANY-BMS-2021-008096

PATIENT
  Age: 72 Year
  Sex: Male
  Weight: 120 kg

DRUGS (11)
  1. NIVOLUMAB [Suspect]
     Active Substance: NIVOLUMAB
     Indication: Rectal cancer
     Dosage: 2X 360MG DAY 14 AND 28
     Route: 042
     Dates: start: 20210105, end: 20210126
  2. IPILIMUMAB [Suspect]
     Active Substance: IPILIMUMAB
     Indication: Rectal cancer
     Dosage: 1X 120 MG DAY 7
     Route: 042
     Dates: start: 20210105, end: 20210126
  3. COENAC [Concomitant]
     Indication: Hypertension
     Dosage: 20 MG / 12.5 MG, DAILY
     Route: 048
  4. ASPIRIN [Concomitant]
     Active Substance: ASPIRIN
     Indication: Cardiovascular event prophylaxis
     Dosage: 100 MILLIGRAM, QD
     Route: 048
  5. LEVOTHYROXINE SODIUM [Concomitant]
     Active Substance: LEVOTHYROXINE SODIUM
     Indication: Hypothyroidism
     Dosage: 50 MICROGRAM, QD
     Route: 048
  6. BISOPROLOL [Concomitant]
     Active Substance: BISOPROLOL
     Indication: Hypertension
     Dosage: 2.5 MILLIGRAM, QD
     Route: 048
  7. TAMSULOSIN GENERICON [Concomitant]
     Indication: Benign prostatic hyperplasia
     Dosage: 0.4 MILLIGRAM, QD
     Route: 048
     Dates: start: 20210302
  8. ATORVASTATIN [Concomitant]
     Active Substance: ATORVASTATIN
     Indication: Cardiovascular event prophylaxis
     Dosage: 10 MILLIGRAM, QD
     Route: 048
  9. ENAC [DICLOFENAC SODIUM] [Concomitant]
     Indication: Hypertension
     Dosage: 10 MILLIGRAM, QD
     Route: 048
  10. DIOSMIN [Concomitant]
     Active Substance: DIOSMIN
     Indication: Haemorrhoids
     Dosage: 500 MILLIGRAM, QD
     Route: 048
  11. CHOLECALCIFEROL [Concomitant]
     Active Substance: CHOLECALCIFEROL
     Indication: Vitamin D deficiency
     Dosage: 40 GTT, WEEKLY
     Route: 048

REACTIONS (2)
  - Myositis [Recovered/Resolved with Sequelae]
  - Myasthenia gravis [Recovered/Resolved with Sequelae]

NARRATIVE: CASE EVENT DATE: 20210126
